FAERS Safety Report 12455148 (Version 1)
Quarter: 2016Q2

REPORT INFORMATION
  Report Type: Report from Study
  Country: AT (occurrence: AT)
  Receive Date: 20160610
  Receipt Date: 20160610
  Transmission Date: 20160815
  Serious: Yes (Death)
  Sender: FDA-Public Use
  Company Number: AT-TOLMAR, INC.-2011AT002945

PATIENT
  Sex: Male
  Weight: 59 kg

DRUGS (1)
  1. ELIGARD [Suspect]
     Active Substance: LEUPROLIDE ACETATE
     Indication: ADENOCARCINOMA
     Dosage: UNK, UNK
     Route: 058
     Dates: end: 20100926

REACTIONS (1)
  - Death [Fatal]
